FAERS Safety Report 7575377-9 (Version None)
Quarter: 2011Q2

REPORT INFORMATION
  Report Type: 
  Country: None (occurrence: None)
  Receive Date: 20110627
  Receipt Date: 20110614
  Transmission Date: 20111010
  Serious: Yes (Hospitalization, Disabling, Other)
  Sender: FDA-Public Use
  Company Number: US-ELI_LILLY_AND_COMPANY-US200911002225

PATIENT
  Sex: Female
  Weight: 49.433 kg

DRUGS (9)
  1. PREVACID [Concomitant]
     Dosage: 30 MG, DAILY (1/D)
  2. PROTONIX [Concomitant]
     Dosage: 40 MG, DAILY (1/D)
     Dates: start: 20040101
  3. KEFZOL [Concomitant]
  4. CALCIUM CARBONATE [Concomitant]
     Dosage: UNK, UNKNOWN
     Route: 065
  5. VITAMIN E /00110501/ [Concomitant]
     Dosage: 400 IU, DAILY (1/D)
  6. ASCORBIC ACID [Concomitant]
     Dosage: 500 MG, DAILY (1/D)
  7. EVISTA [Suspect]
     Dosage: 50 MG, DAILY (1/D)
  8. VITAMIN TAB [Concomitant]
     Dosage: UNK, UNKNOWN
     Route: 065
  9. EVISTA [Suspect]
     Indication: OSTEOPOROSIS
     Dosage: 60 MG, DAILY (1/D)
     Route: 065
     Dates: start: 20000109, end: 20040101

REACTIONS (24)
  - CORONARY ARTERY DISEASE [None]
  - BLOOD GLUCOSE INCREASED [None]
  - CARDIAC VALVE DISEASE [None]
  - ANGINA UNSTABLE [None]
  - ANXIETY [None]
  - ANGINA PECTORIS [None]
  - CARDIAC MURMUR [None]
  - MYOCARDIAL ISCHAEMIA [None]
  - ATRIAL FIBRILLATION [None]
  - GAIT DISTURBANCE [None]
  - EMBOLIC STROKE [None]
  - MENTAL IMPAIRMENT [None]
  - ASTHENIA [None]
  - STRESS [None]
  - DEPRESSION [None]
  - APHASIA [None]
  - LABILE HYPERTENSION [None]
  - RECTOCELE [None]
  - BREAST LUMP REMOVAL [None]
  - MYOCARDIAL INFARCTION [None]
  - ELECTROCARDIOGRAM ABNORMAL [None]
  - URETHRAL CARUNCLE [None]
  - ASPIRATION [None]
  - HYPERTENSIVE HEART DISEASE [None]
